FAERS Safety Report 6401874-5 (Version None)
Quarter: 2009Q4

REPORT INFORMATION
  Report Type: 
  Country: None (occurrence: None)
  Receive Date: 20091013
  Receipt Date: 20091006
  Transmission Date: 20100525
  Serious: Yes (Hospitalization)
  Sender: FDA-Public Use
  Company Number: 2009SP029292

PATIENT
  Sex: Male

DRUGS (3)
  1. PEG-INTRON [Suspect]
     Indication: HEPATITIS C
     Dates: start: 20090720, end: 20090801
  2. RIBASPHERE [Suspect]
     Indication: HEPATITIS C
     Dates: start: 20090720, end: 20090801
  3. INSULIN [Concomitant]

REACTIONS (3)
  - GASTRIC HAEMORRHAGE [None]
  - PNEUMONIA [None]
  - WHITE BLOOD CELL COUNT DECREASED [None]
